FAERS Safety Report 9360435 (Version 3)
Quarter: 2013Q4

REPORT INFORMATION
  Report Type: Spontaneous
  Country: DE (occurrence: DE)
  Receive Date: 20130621
  Receipt Date: 20131220
  Transmission Date: 20140711
  Serious: Yes (Hospitalization)
  Sender: FDA-Public Use
  Company Number: DE-ROCHE-1238953

PATIENT
  Age: 45 Year
  Sex: Male

DRUGS (2)
  1. RITUXIMAB [Suspect]
     Indication: CHRONIC FATIGUE SYNDROME
     Route: 065
     Dates: end: 20121113
  2. RITUXIMAB [Suspect]
     Indication: IMMUNE SYSTEM DISORDER

REACTIONS (4)
  - Influenza like illness [Not Recovered/Not Resolved]
  - Asthenia [Not Recovered/Not Resolved]
  - B-lymphocyte count decreased [Unknown]
  - Disturbance in attention [Recovered/Resolved]
